FAERS Safety Report 11081703 (Version 1)
Quarter: 2015Q2

REPORT INFORMATION
  Report Type: Spontaneous
  Country: FR (occurrence: None)
  Receive Date: 20150429
  Receipt Date: 20150429
  Transmission Date: 20150821
  Serious: Yes (Hospitalization)
  Sender: FDA-Public Use
  Company Number: 8022664

PATIENT
  Sex: Female
  Weight: 63 kg

DRUGS (7)
  1. SOTALOL. [Concomitant]
     Active Substance: SOTALOL
  2. DIFFU K [Concomitant]
     Active Substance: POTASSIUM CHLORIDE
  3. LOVENOX [Concomitant]
     Active Substance: ENOXAPARIN SODIUM
  4. BROMAZEPAM [Concomitant]
     Active Substance: BROMAZEPAM
  5. CALCIUM [Concomitant]
     Active Substance: CALCIUM
  6. LEVOTHYROX [Suspect]
     Active Substance: LEVOTHYROXINE
     Indication: PRODUCT USED FOR UNKNOWN INDICATION
  7. LASILIX (FUROSEMIDE) [Concomitant]
     Active Substance: FUROSEMIDE

REACTIONS (5)
  - Hyperthyroidism [None]
  - Hypothyroidism [None]
  - Diarrhoea [None]
  - Anxiety [None]
  - Hypertension [None]
